FAERS Safety Report 7768338-8 (Version None)
Quarter: 2011Q3

REPORT INFORMATION
  Report Type: 
  Country: None (occurrence: None)
  Receive Date: 20110922
  Receipt Date: 20110503
  Transmission Date: 20111222
  Serious: No
  Sender: FDA-Public Use
  Company Number: US-ASTRAZENECA-2011SE26763

PATIENT
  Sex: Male

DRUGS (1)
  1. SEROQUEL [Suspect]
     Route: 048

REACTIONS (6)
  - DRUG DOSE OMISSION [None]
  - ARTHRALGIA [None]
  - PATELLOFEMORAL PAIN SYNDROME [None]
  - MENISCUS LESION [None]
  - OEDEMA PERIPHERAL [None]
  - INSOMNIA [None]
